FAERS Safety Report 6128175-7 (Version None)
Quarter: 2009Q1

REPORT INFORMATION
  Report Type: 
  Country: None (occurrence: None)
  Receive Date: 20090320
  Receipt Date: 20090320
  Transmission Date: 20090719
  Serious: Yes (Hospitalization)
  Sender: FDA-Public Use
  Company Number: None

PATIENT
  Age: 58 Year
  Sex: Female
  Weight: 73.1 kg

DRUGS (1)
  1. HALOPERIDOL UNK UNK [Suspect]
     Indication: AGITATION
     Dosage: 10 MG ONCE IV
     Route: 042
     Dates: start: 20080615, end: 20080615

REACTIONS (7)
  - BLOOD MAGNESIUM DECREASED [None]
  - CARDIO-RESPIRATORY ARREST [None]
  - CONVULSION [None]
  - EXTRASYSTOLES [None]
  - SINUS TACHYCARDIA [None]
  - TORSADE DE POINTES [None]
  - UNRESPONSIVE TO STIMULI [None]
